FAERS Safety Report 6475679-3 (Version None)
Quarter: 2009Q4

REPORT INFORMATION
  Report Type: 
  Country: None (occurrence: None)
  Receive Date: 20091204
  Receipt Date: 20091128
  Transmission Date: 20100525
  Serious: Yes (Hospitalization)
  Sender: FDA-Public Use
  Company Number: US-TEVA-216576USA

PATIENT
  Sex: Female

DRUGS (2)
  1. DILTIAZEM HYDROCHLORIDE 30 MG, 60 MG, 90 MG + 120 MG TABLETS [Suspect]
     Indication: CORONARY ARTERY DISEASE
     Route: 048
     Dates: end: 20091128
  2. DILTIAZEM HYDROCHLORIDE 30 MG, 60 MG, 90 MG + 120 MG TABLETS [Suspect]
     Indication: CARDIAC FAILURE CONGESTIVE

REACTIONS (4)
  - DIARRHOEA [None]
  - DIZZINESS [None]
  - NAUSEA [None]
  - VIRAL INFECTION [None]
